FAERS Safety Report 10389808 (Version 3)
Quarter: 2014Q3

REPORT INFORMATION
  Report Type: Spontaneous
  Country: DE (occurrence: DE)
  Receive Date: 20140818
  Receipt Date: 20140905
  Transmission Date: 20150326
  Serious: Yes (Hospitalization, Other)
  Sender: FDA-Public Use
  Company Number: DE-JNJFOC-20140810788

PATIENT
  Age: 83 Year
  Sex: Female
  Weight: 36 kg

DRUGS (1)
  1. XARELTO [Suspect]
     Active Substance: RIVAROXABAN
     Indication: THROMBOSIS
     Route: 048
     Dates: start: 20140212

REACTIONS (6)
  - Hypokalaemia [Unknown]
  - Peripheral swelling [Unknown]
  - Haemarthrosis [Unknown]
  - Blood creatinine increased [Unknown]
  - Femur fracture [Unknown]
  - Deep vein thrombosis [Recovering/Resolving]

NARRATIVE: CASE EVENT DATE: 20140729
